FAERS Safety Report 9750054 (Version 1)
Quarter: 2013Q4

REPORT INFORMATION
  Report Type: Spontaneous
  Country: DE (occurrence: DE)
  Receive Date: 20131212
  Receipt Date: 20131212
  Transmission Date: 20140711
  Serious: Yes (Hospitalization)
  Sender: FDA-Public Use
  Company Number: DE-GILEAD-DE-CVT-090746

PATIENT
  Age: 72 Year
  Sex: Male

DRUGS (11)
  1. RANEXA [Suspect]
     Indication: PRODUCT USED FOR UNKNOWN INDICATION
     Route: 048
     Dates: start: 20091008, end: 20091103
  2. ALLOPURINOL [Concomitant]
  3. PROVAS COMP [Concomitant]
  4. NEBIVOLOL [Concomitant]
  5. DIGITOXIN [Concomitant]
  6. PENTALONG [Concomitant]
  7. SIMVASTATIN [Concomitant]
  8. TORASEMIDE [Concomitant]
  9. EUTHYROX [Concomitant]
  10. ACTRAPHANE [Concomitant]
  11. LANTUS [Concomitant]

REACTIONS (3)
  - Oedema peripheral [Not Recovered/Not Resolved]
  - Dizziness [Recovered/Resolved]
  - Insomnia [Recovered/Resolved]
